FAERS Safety Report 12457438 (Version 2)
Quarter: 2016Q3

REPORT INFORMATION
  Report Type: Spontaneous
  Country: US (occurrence: US)
  Receive Date: 20160610
  Receipt Date: 20160703
  Transmission Date: 20161109
  Serious: No
  Sender: FDA-Public Use
  Company Number: US-BRISTOL-MYERS SQUIBB COMPANY-BMS-2016-045641

PATIENT
  Sex: Male
  Weight: 81.64 kg

DRUGS (1)
  1. YERVOY [Suspect]
     Active Substance: IPILIMUMAB
     Indication: MALIGNANT MELANOMA
     Dosage: 869.10 MG, UNK
     Route: 042
     Dates: start: 20160322, end: 20160412

REACTIONS (1)
  - Drug tolerance decreased [Unknown]
